FAERS Safety Report 18642922 (Version 1)
Quarter: 2020Q4

REPORT INFORMATION
  Report Type: Spontaneous
  Country: FR (occurrence: FR)
  Receive Date: 20201221
  Receipt Date: 20201221
  Transmission Date: 20210114
  Serious: Yes (Hospitalization)
  Sender: FDA-Public Use
  Company Number: FR-009507513-2012FRA006466

PATIENT
  Age: 53 Year
  Sex: Male

DRUGS (10)
  1. SKENAN [Concomitant]
     Active Substance: MORPHINE SULFATE
     Indication: PAIN
     Dosage: 2 DOSAGE FORM, QD; STENGTH: MICROGRANULES PROLONGED RELEASE AS CAPSULE
     Route: 048
     Dates: start: 20201105
  2. IPRATROPIUM BROMIDE. [Concomitant]
     Active Substance: IPRATROPIUM BROMIDE
     Indication: DYSPNOEA
     Dosage: 3 DOSAGE FORM, QD
     Route: 055
     Dates: start: 20201122
  3. AUGMENTIN [Concomitant]
     Active Substance: AMOXICILLIN\CLAVULANATE POTASSIUM
     Indication: MEDIASTINITIS
     Dosage: 6 GRAM, QD
     Route: 042
     Dates: start: 20201113, end: 20201116
  4. DAPTOMYCIN. [Suspect]
     Active Substance: DAPTOMYCIN
     Indication: MEDIASTINITIS
     Dosage: 1 GRAM, Q24H
     Route: 042
     Dates: start: 20201116, end: 20201127
  5. ACETAMINOPHEN. [Concomitant]
     Active Substance: ACETAMINOPHEN
     Indication: PAIN
     Dosage: UNK
     Route: 048
     Dates: start: 202011
  6. AMLODIPINE [Concomitant]
     Active Substance: AMLODIPINE BESYLATE
     Indication: HYPERTENSION
     Dosage: 10 MILLIGRAM, QD
     Route: 048
     Dates: start: 202011
  7. ONDANSETRON [Concomitant]
     Active Substance: ONDANSETRON
     Indication: PROPHYLAXIS OF NAUSEA AND VOMITING
     Route: 048
     Dates: start: 20201101
  8. EPINITRIL [Concomitant]
     Active Substance: NITROGLYCERIN
     Indication: ARTERIAL BYPASS OPERATION
     Dosage: 1 DOSAGE FORM, QD, 5 MG/24 HOURS, TRANSDERMAL DEVICE
     Route: 003
     Dates: start: 20201103
  9. PANTOPRAZOLE [Concomitant]
     Active Substance: PANTOPRAZOLE
     Indication: GASTRITIS PROPHYLAXIS
     Dosage: 20 MILLIGRAM, QD
     Route: 048
     Dates: start: 20201101
  10. ACTISKENAN [Concomitant]
     Active Substance: MORPHINE SULFATE
     Indication: PAIN
     Dosage: 10 MILLIGRAM, Q6H
     Route: 048
     Dates: start: 20201101

REACTIONS (3)
  - Eosinophilic pneumonia [Recovering/Resolving]
  - Lung disorder [Recovering/Resolving]
  - Eosinophilia [Recovered/Resolved]

NARRATIVE: CASE EVENT DATE: 20201119
